FAERS Safety Report 23061017 (Version 1)
Quarter: 2023Q4

REPORT INFORMATION
  Report Type: Spontaneous
  Country: US (occurrence: US)
  Receive Date: 20231013
  Receipt Date: 20231013
  Transmission Date: 20240110
  Serious: No
  Sender: FDA-Public Use
  Company Number: US-NOVITIUMPHARMA-2023USNVP01789

PATIENT
  Age: 44 Year
  Sex: Female

DRUGS (2)
  1. ACETAZOLAMIDE [Suspect]
     Active Substance: ACETAZOLAMIDE
     Indication: Intracranial pressure increased
     Route: 065
     Dates: start: 20210801
  2. LAMICTAL [Concomitant]
     Active Substance: LAMOTRIGINE
     Indication: Product used for unknown indication

REACTIONS (3)
  - Body temperature fluctuation [Unknown]
  - Weight decreased [Unknown]
  - Hypohidrosis [Unknown]
